FAERS Safety Report 24200943 (Version 4)
Quarter: 2024Q4

REPORT INFORMATION
  Report Type: Report from Study
  Country: US (occurrence: US)
  Receive Date: 20240812
  Receipt Date: 20241114
  Transmission Date: 20250115
  Serious: Yes (Hospitalization, Other)
  Sender: TAKEDA
  Company Number: US-TAKEDA-2023TUS124033

PATIENT
  Age: 56 Year
  Sex: Male

DRUGS (4)
  1. TEDUGLUTIDE [Suspect]
     Active Substance: TEDUGLUTIDE
     Indication: Gastrointestinal disorder
     Dosage: 0.42 MILLILITER, QD
     Dates: start: 20231206
  2. TEDUGLUTIDE [Suspect]
     Active Substance: TEDUGLUTIDE
     Indication: Post procedural complication
     Dosage: 0.42 MILLILITER, QD
     Dates: start: 202312, end: 20240826
  3. TEDUGLUTIDE [Suspect]
     Active Substance: TEDUGLUTIDE
     Dosage: UNK UNK, QD
  4. TEDUGLUTIDE [Suspect]
     Active Substance: TEDUGLUTIDE
     Dosage: 0.42 MILLILITER, QD

REACTIONS (9)
  - Intestinal fistula [Recovering/Resolving]
  - Post procedural complication [Unknown]
  - Cholecystitis acute [Unknown]
  - Feeling jittery [Recovered/Resolved]
  - Postoperative wound complication [Not Recovered/Not Resolved]
  - Product use in unapproved indication [Unknown]
  - Impaired healing [Unknown]
  - Fistula discharge [Recovering/Resolving]
  - Cholelithiasis [Unknown]

NARRATIVE: CASE EVENT DATE: 20231206
